FAERS Safety Report 18830304 (Version 1)
Quarter: 2021Q1

REPORT INFORMATION
  Report Type: Spontaneous
  Country: US (occurrence: US)
  Receive Date: 20210202
  Receipt Date: 20210202
  Transmission Date: 20210419
  Serious: Yes (Hospitalization)
  Sender: FDA-Public Use
  Company Number: None

PATIENT
  Age: 58 Year
  Sex: Male
  Weight: 68 kg

DRUGS (1)
  1. BAMLANIVIMAB. [Suspect]
     Active Substance: BAMLANIVIMAB
     Indication: SARS-COV-2 TEST POSITIVE
     Dosage: ?          OTHER FREQUENCY:ONCE;?
     Route: 041
     Dates: start: 20210128, end: 20210128

REACTIONS (7)
  - Diarrhoea [None]
  - Pneumonia [None]
  - Pain [None]
  - Abdominal pain [None]
  - Pyrexia [None]
  - Acute respiratory failure [None]
  - Nausea [None]

NARRATIVE: CASE EVENT DATE: 20210129
